FAERS Safety Report 9265999 (Version 2)
Quarter: 2013Q4

REPORT INFORMATION
  Report Type: Report from Study
  Country: US (occurrence: US)
  Receive Date: 20130501
  Receipt Date: 20131121
  Transmission Date: 20140711
  Serious: Yes (Hospitalization, Other)
  Sender: FDA-Public Use
  Company Number: US-US-EMD SERONO, INC.-7208237

PATIENT
  Sex: Female

DRUGS (5)
  1. REBIF [Suspect]
     Indication: MULTIPLE SCLEROSIS
     Route: 058
     Dates: start: 20080725
  2. NEURONTIN [Concomitant]
     Indication: PRODUCT USED FOR UNKNOWN INDICATION
  3. TIZANIDINE [Concomitant]
     Indication: MUSCLE SPASMS
  4. BACLOFEN [Concomitant]
     Indication: MUSCLE SPASMS
  5. TYLENOL                            /00020001/ [Concomitant]
     Indication: PREMEDICATION

REACTIONS (14)
  - Pseudomonas infection [Not Recovered/Not Resolved]
  - Calculus bladder [Not Recovered/Not Resolved]
  - Drug hypersensitivity [Unknown]
  - Decubitus ulcer [Not Recovered/Not Resolved]
  - Blood pressure decreased [Unknown]
  - Nephrolithiasis [Not Recovered/Not Resolved]
  - Oedema peripheral [Not Recovered/Not Resolved]
  - Tremor [Not Recovered/Not Resolved]
  - Fungal infection [Unknown]
  - Influenza [Unknown]
  - Asthenia [Not Recovered/Not Resolved]
  - Malaise [Not Recovered/Not Resolved]
  - Pain [Not Recovered/Not Resolved]
  - Injection site pain [Not Recovered/Not Resolved]
